FAERS Safety Report 18086377 (Version 1)
Quarter: 2020Q3

REPORT INFORMATION
  Report Type: Spontaneous
  Country: US (occurrence: US)
  Receive Date: 20200728
  Receipt Date: 20200728
  Transmission Date: 20201103
  Serious: Yes (Other)
  Sender: FDA-Public Use
  Company Number: None

PATIENT
  Sex: Female
  Weight: 88.45 kg

DRUGS (5)
  1. CLANZAPAM [Concomitant]
  2. METRONIDAZOLE. [Suspect]
     Active Substance: METRONIDAZOLE
     Indication: UTERINE INFECTION
  3. PRISTQ [Concomitant]
  4. SPIRLACTONE [Concomitant]
  5. SERQUAIL [Concomitant]

REACTIONS (1)
  - Deafness [None]
